FAERS Safety Report 13888922 (Version 1)
Quarter: 2017Q3

REPORT INFORMATION
  Report Type: Spontaneous
  Country: US (occurrence: US)
  Receive Date: 20170822
  Receipt Date: 20170822
  Transmission Date: 20171127
  Serious: No
  Sender: FDA-Public Use
  Company Number: US-ROCHE-1145097

PATIENT
  Sex: Male

DRUGS (5)
  1. PREDNISONE. [Concomitant]
     Active Substance: PREDNISONE
     Dosage: WEANED DOWN FROM 80 MG TO UNKNOWN DOSE
     Route: 065
  2. PREDNISONE. [Concomitant]
     Active Substance: PREDNISONE
     Dosage: DOSE INCREASED FROM UNKNOWN DOSE
     Route: 065
  3. ACTEMRA [Suspect]
     Active Substance: TOCILIZUMAB
     Indication: RHEUMATOID ARTHRITIS
     Dosage: 10/SEP/2012, LAST DOSE PRIOR TO EVENT
     Route: 042
     Dates: start: 201209
  4. PREDNISONE. [Concomitant]
     Active Substance: PREDNISONE
     Dosage: PREVIOUSLY GIVEN LARGE DOSES PRIOR TO 80 MG
     Route: 065
  5. VICODIN [Concomitant]
     Active Substance: ACETAMINOPHEN\HYDROCODONE BITARTRATE
     Dosage: DOSE FORM = PILLS
     Route: 048

REACTIONS (2)
  - Arthralgia [Unknown]
  - Gait inability [Unknown]
